FAERS Safety Report 12557253 (Version 3)
Quarter: 2016Q3

REPORT INFORMATION
  Report Type: Spontaneous
  Country: US (occurrence: US)
  Receive Date: 20160714
  Receipt Date: 20160802
  Transmission Date: 20161109
  Serious: Yes (Other)
  Sender: FDA-Public Use
  Company Number: US-PFIZER INC-2016078784

PATIENT
  Age: 71 Year
  Sex: Female
  Weight: 59.42 kg

DRUGS (2)
  1. CEFTRIAXONE SODIUM. [Suspect]
     Active Substance: CEFTRIAXONE SODIUM
     Dosage: UNK
     Route: 042
  2. AMOXICILLIN. [Suspect]
     Active Substance: AMOXICILLIN
     Dosage: 500 MG, 3X/DAY
     Route: 048
     Dates: start: 20151109

REACTIONS (7)
  - Dry mouth [Unknown]
  - Glossodynia [Unknown]
  - Malaise [Unknown]
  - Tongue discolouration [Unknown]
  - Oral discomfort [Unknown]
  - Weight decreased [Unknown]
  - Decreased appetite [Unknown]
